FAERS Safety Report 4480880-4 (Version None)
Quarter: 2004Q4

REPORT INFORMATION
  Report Type: 
  Country: None (occurrence: None)
  Receive Date: 20040923
  Receipt Date: 20040601
  Transmission Date: 20050328
  Serious: No
  Sender: FDA-Public Use
  Company Number: USA030742656

PATIENT
  Age: 74 Year
  Sex: Female

DRUGS (1)
  1. FORTEO [Suspect]
     Indication: BONE DENSITY DECREASED
     Dates: start: 20030501

REACTIONS (4)
  - INJECTION SITE HAEMORRHAGE [None]
  - MUSCLE CRAMP [None]
  - MYALGIA [None]
  - PARAESTHESIA [None]
